FAERS Safety Report 17616364 (Version 3)
Quarter: 2020Q3

REPORT INFORMATION
  Report Type: Report from Study
  Country: None (occurrence: US)
  Receive Date: 20200402
  Receipt Date: 20200909
  Transmission Date: 20201102
  Serious: Yes (Hospitalization, Other)
  Sender: FDA-Public Use
  Company Number: US-ABBVIE-20K-163-3347075-00

PATIENT
  Sex: Female
  Weight: 49.94 kg

DRUGS (1)
  1. HUMIRA [Suspect]
     Active Substance: ADALIMUMAB
     Indication: CROHN^S DISEASE
     Route: 058
     Dates: start: 2014

REACTIONS (8)
  - Uterine haemorrhage [Unknown]
  - Retinal vein occlusion [Not Recovered/Not Resolved]
  - Syncope [Recovered/Resolved]
  - Overdose [Unknown]
  - Loss of consciousness [Recovered/Resolved]
  - Urinary tract infection [Unknown]
  - Macular degeneration [Unknown]
  - Renal disorder [Not Recovered/Not Resolved]

NARRATIVE: CASE EVENT DATE: 2018
